FAERS Safety Report 6551684-3 (Version None)
Quarter: 2010Q1

REPORT INFORMATION
  Report Type: 
  Country: None (occurrence: None)
  Receive Date: 20100126
  Receipt Date: 20100113
  Transmission Date: 20100710
  Serious: Yes (Hospitalization, Other)
  Sender: FDA-Public Use
  Company Number: PHHY2009MX48697

PATIENT
  Sex: Female

DRUGS (5)
  1. DIOVAN [Suspect]
     Indication: HYPERTENSION
     Dosage: 2 TABLETS (160 MG) DAILY
     Route: 048
     Dates: start: 20070815, end: 20091103
  2. DIOVAN [Suspect]
     Dosage: 1 TABLET (80/12.5 MG) PER DAY
  3. DIOVAN [Suspect]
     Dosage: 320/25 MG PER DAY
  4. GLYBURIDE AND METFORMIN HCL [Concomitant]
     Indication: DIABETES MELLITUS
     Dosage: 2 TABLETS PER DAY
     Route: 065
  5. METOPROLOL [Concomitant]
     Route: 065

REACTIONS (7)
  - BLOOD GLUCOSE INCREASED [None]
  - BLOOD PRESSURE INCREASED [None]
  - DYSPNOEA [None]
  - FLUID RETENTION [None]
  - METABOLIC DISORDER [None]
  - OEDEMA PERIPHERAL [None]
  - RENAL FAILURE [None]
